FAERS Safety Report 12374703 (Version 1)
Quarter: 2016Q2

REPORT INFORMATION
  Report Type: Spontaneous
  Country: US (occurrence: None)
  Receive Date: 20160516
  Receipt Date: 20160516
  Transmission Date: 20160815
  Serious: No
  Sender: FDA-Public Use
  Company Number: None

PATIENT
  Age: 35 Year
  Sex: Female
  Weight: 48.54 kg

DRUGS (3)
  1. IBUPROPHEN [Concomitant]
     Active Substance: IBUPROFEN
  2. BOTOX [Suspect]
     Active Substance: ONABOTULINUMTOXINA
     Indication: SKIN WRINKLING
     Dosage: AS NEEDED  INJECTED TO FOREHEAD
     Dates: start: 20151204
  3. TYLENOL [Concomitant]
     Active Substance: ACETAMINOPHEN

REACTIONS (2)
  - Tinnitus [None]
  - Ear pain [None]

NARRATIVE: CASE EVENT DATE: 20160226
